FAERS Safety Report 5683259-2 (Version None)
Quarter: 2008Q1

REPORT INFORMATION
  Report Type: 
  Country: None (occurrence: None)
  Receive Date: 20080327
  Receipt Date: 20080318
  Transmission Date: 20080703
  Serious: Yes (Hospitalization)
  Sender: FDA-Public Use
  Company Number: BR-ABBOTT-08P-020-0443348-00

PATIENT
  Sex: Female
  Weight: 65 kg

DRUGS (11)
  1. SYNTHROID [Suspect]
     Indication: HYPOTHYROIDISM
     Route: 048
  2. SYNTHROID [Suspect]
     Route: 048
     Dates: start: 20000101
  3. SYNTHROID [Suspect]
     Route: 048
  4. SYNTHROID [Suspect]
     Route: 048
     Dates: start: 20070101
  5. SYNTHROID [Suspect]
     Route: 048
     Dates: start: 20080101, end: 20080101
  6. SYNTHROID [Suspect]
     Route: 048
     Dates: start: 20080101
  7. MODURETIC 5-50 [Concomitant]
     Indication: FLUID RETENTION
     Route: 048
  8. SUXAMETHONIUM CHLORIDE [Concomitant]
     Indication: FIBROMYALGIA
     Route: 048
     Dates: start: 20070901
  9. SUXAMETHONIUM CHLORIDE [Concomitant]
     Indication: PAIN
  10. CYCLOBENZAPRINE HCL [Concomitant]
     Indication: FIBROMYALGIA
     Route: 048
     Dates: start: 20071101
  11. CYCLOBENZAPRINE HCL [Concomitant]
     Indication: PAIN

REACTIONS (6)
  - ASTHENIA [None]
  - BREAST MASS [None]
  - BURSITIS [None]
  - DRUG INEFFECTIVE [None]
  - HYPOTHERMIA [None]
  - SOMNOLENCE [None]
